FAERS Safety Report 7851636-7 (Version None)
Quarter: 2011Q4

REPORT INFORMATION
  Report Type: 
  Country: None (occurrence: None)
  Receive Date: 20111026
  Receipt Date: 20111017
  Transmission Date: 20120403
  Serious: Yes (Hospitalization, Other)
  Sender: FDA-Public Use
  Company Number: PHHY2011SI92441

PATIENT
  Age: 62 Year
  Sex: Male

DRUGS (2)
  1. EXFORGE HCT [Suspect]
     Indication: HYPERTENSION
     Dosage: 10 MG/ 160 MG / 12.5 MG
     Route: 048
  2. EXFORGE HCT [Suspect]
     Dosage: 10 MG/ 160 MG / 25 MG, QD
     Route: 048

REACTIONS (3)
  - HYPONATRAEMIA [None]
  - CHEST PAIN [None]
  - BLOOD OSMOLARITY DECREASED [None]
